FAERS Safety Report 19488472 (Version 2)
Quarter: 2021Q3

REPORT INFORMATION
  Report Type: Spontaneous
  Country: JP (occurrence: JP)
  Receive Date: 20210702
  Receipt Date: 20210716
  Transmission Date: 20211014
  Serious: Yes (Other)
  Sender: FDA-Public Use
  Company Number: JP-009507513-2106JPN007642

PATIENT
  Age: 57 Year
  Sex: Male

DRUGS (12)
  1. DEXART [Concomitant]
     Active Substance: DEXAMETHASONE SODIUM PHOSPHATE
     Dosage: 4.95 MG
     Route: 041
  2. EMEND [Suspect]
     Active Substance: APREPITANT
     Indication: PROPHYLAXIS OF NAUSEA AND VOMITING
     Dosage: 125 MG
     Route: 048
  3. OPDIVO [Suspect]
     Active Substance: NIVOLUMAB
     Indication: NON-SMALL CELL LUNG CANCER RECURRENT
     Dosage: 360 MG, Q3W
     Route: 041
  4. ISOTONIC SODIUM CHLORIDE SOLUTION [Concomitant]
     Active Substance: SODIUM CHLORIDE
     Dosage: 600 ML
     Route: 041
  5. EMEND [Suspect]
     Active Substance: APREPITANT
     Dosage: 80 MG
     Route: 048
  6. NASEA OD [Concomitant]
     Active Substance: RAMOSETRON HYDROCHLORIDE
     Dosage: 0.1 MG
     Route: 048
  7. GLUCOSE [Concomitant]
     Active Substance: DEXTROSE
     Dosage: 250 ML (5%)
     Route: 041
  8. ISOTONIC SODIUM CHLORIDE SOLUTION [Concomitant]
     Active Substance: SODIUM CHLORIDE
     Dosage: 450 ML
     Route: 041
  9. ALIMTA [Concomitant]
     Active Substance: PEMETREXED DISODIUM
     Indication: NON-SMALL CELL LUNG CANCER RECURRENT
     Dosage: 500 MG/M2, Q3W
     Route: 041
  10. DECADRON FOSFATO [Concomitant]
     Dosage: 4 MG
     Route: 048
  11. YERVOY [Suspect]
     Active Substance: IPILIMUMAB
     Indication: NON-SMALL CELL LUNG CANCER RECURRENT
     Dosage: 1 MG/KG, Q6W
     Route: 041
  12. CARBOPLATIN. [Concomitant]
     Active Substance: CARBOPLATIN
     Indication: NON-SMALL CELL LUNG CANCER RECURRENT
     Dosage: AUC 5, Q3W
     Route: 041

REACTIONS (5)
  - Adrenal insufficiency [Unknown]
  - Diarrhoea [Unknown]
  - Pneumonia [Unknown]
  - Neutropenia [Unknown]
  - Hyponatraemia [Unknown]
